FAERS Safety Report 17901127 (Version 1)
Quarter: 2020Q2

REPORT INFORMATION
  Report Type: Spontaneous
  Country: CA (occurrence: CA)
  Receive Date: 20200616
  Receipt Date: 20200616
  Transmission Date: 20200714
  Serious: Yes (Other)
  Sender: FDA-Public Use
  Company Number: CA-PFIZER INC-2018034549

PATIENT
  Age: 79 Year
  Sex: Female
  Weight: 75 kg

DRUGS (3)
  1. LEFLUNOMIDE. [Concomitant]
     Active Substance: LEFLUNOMIDE
     Indication: RHEUMATOID ARTHRITIS
     Dosage: 20 MG, DAILY
     Route: 048
  2. SULFASALAZINE. [Concomitant]
     Active Substance: SULFASALAZINE
     Dosage: UNK
     Route: 065
  3. XELJANZ [Suspect]
     Active Substance: TOFACITINIB CITRATE
     Indication: RHEUMATOID ARTHRITIS
     Dosage: 5 MG, 2X/DAY
     Route: 048
     Dates: start: 20180106

REACTIONS (15)
  - Cerebrovascular accident [Unknown]
  - C-reactive protein decreased [Unknown]
  - Anal incontinence [Unknown]
  - Decubitus ulcer [Unknown]
  - Therapeutic product effect incomplete [Not Recovered/Not Resolved]
  - Condition aggravated [Unknown]
  - Pain [Unknown]
  - Pollakiuria [Not Recovered/Not Resolved]
  - Nausea [Unknown]
  - Aphasia [Unknown]
  - Back pain [Unknown]
  - Atrial fibrillation [Unknown]
  - Diarrhoea [Unknown]
  - Urinary incontinence [Unknown]
  - Asthenia [Unknown]

NARRATIVE: CASE EVENT DATE: 201801
